FAERS Safety Report 15867120 (Version 1)
Quarter: 2019Q1

REPORT INFORMATION
  Report Type: Spontaneous
  Country: US (occurrence: US)
  Receive Date: 20190102
  Receipt Date: 20190102
  Transmission Date: 20190417
  Serious: Yes (Hospitalization)
  Sender: FDA-Public Use
  Company Number: None

PATIENT
  Age: 59 Year
  Sex: Male

DRUGS (2)
  1. COTELLIC [Suspect]
     Active Substance: COBIMETINIB
     Indication: MALIGNANT MELANOMA
     Dosage: ?          OTHER FREQUENCY:QD1-21 OF 28;?
     Route: 048
     Dates: start: 20181129
  2. ZELBORAF [Suspect]
     Active Substance: VEMURAFENIB
     Indication: MALIGNANT MELANOMA
     Route: 048
     Dates: start: 20181129

REACTIONS (1)
  - Urinary tract infection [None]

NARRATIVE: CASE EVENT DATE: 20181227
